FAERS Safety Report 5832691-2 (Version None)
Quarter: 2008Q3

REPORT INFORMATION
  Report Type: 
  Country: None (occurrence: None)
  Receive Date: 20080804
  Receipt Date: 20080801
  Transmission Date: 20090109
  Serious: Yes (Life-Threatening, Hospitalization)
  Sender: FDA-Public Use
  Company Number: PHEH2008US06822

PATIENT
  Age: 65 Year
  Sex: Male
  Weight: 88.4 kg

DRUGS (6)
  1. TASIGNA [Suspect]
     Indication: B-CELL TYPE ACUTE LEUKAEMIA
     Dosage: 400 MG, BID
     Route: 048
     Dates: start: 20080304
  2. VORICONAZOLE [Concomitant]
     Indication: PNEUMONIA FUNGAL
     Dosage: 200 MG, BID
     Route: 048
     Dates: start: 20080304
  3. NORVASC [Concomitant]
  4. LEVOFLOXACIN [Concomitant]
  5. MORPHINE [Concomitant]
  6. FILGRASTIM [Concomitant]

REACTIONS (3)
  - ABDOMINAL PAIN [None]
  - DIARRHOEA [None]
  - ELECTROCARDIOGRAM QT INTERVAL ABNORMAL [None]
